FAERS Safety Report 14718211 (Version 10)
Quarter: 2020Q2

REPORT INFORMATION
  Report Type: Spontaneous
  Country: US (occurrence: US)
  Receive Date: 20180404
  Receipt Date: 20200429
  Transmission Date: 20200713
  Serious: Yes (Hospitalization, Other)
  Sender: FDA-Public Use
  Company Number: US-SA-2018SA069113

PATIENT
  Age: 48 Year
  Sex: Female
  Weight: 56.7 kg

DRUGS (2)
  1. DUPIXENT [Suspect]
     Active Substance: DUPILUMAB
     Indication: DERMATITIS ATOPIC
     Dosage: UNK
     Route: 058
     Dates: start: 200901
  2. DUPIXENT [Suspect]
     Active Substance: DUPILUMAB
     Dosage: UNK
     Route: 058
     Dates: start: 201804

REACTIONS (10)
  - Erythema [Unknown]
  - Upper limb fracture [Recovering/Resolving]
  - Conjunctivitis [Unknown]
  - Therapeutic response decreased [Unknown]
  - Weight increased [Unknown]
  - Hypersensitivity [Unknown]
  - Dermatitis atopic [Unknown]
  - Depression [Unknown]
  - Feeling abnormal [Unknown]
  - Eye disorder [Unknown]

NARRATIVE: CASE EVENT DATE: 2018
